FAERS Safety Report 8493595-2 (Version None)
Quarter: 2012Q3

REPORT INFORMATION
  Report Type: 
  Country: None (occurrence: None)
  Receive Date: 20120706
  Receipt Date: 20120702
  Transmission Date: 20120928
  Serious: Yes (Hospitalization)
  Sender: FDA-Public Use
  Company Number: IT-PFIZER INC-2012157931

PATIENT
  Age: 66 Year
  Sex: Female

DRUGS (6)
  1. ASPIRIN [Concomitant]
     Dosage: UNK
  2. OLMESARTAN MEDOXOMIL [Concomitant]
     Dosage: 7.5 MG, UNK
  3. ZITHROMAX [Suspect]
     Indication: BRONCHITIS
     Dosage: 500 MG, 1X/DAY
     Route: 048
  4. PROPAFENONE HCL [Concomitant]
     Dosage: UNK
  5. OMEPRAZOLE [Concomitant]
     Dosage: UNK
  6. ZITHROMAX [Suspect]
     Indication: CYSTOSCOPY

REACTIONS (3)
  - AMNESIA [None]
  - HYPERSOMNIA [None]
  - CONFUSIONAL STATE [None]
